FAERS Safety Report 23772682 (Version 1)
Quarter: 2024Q2

REPORT INFORMATION
  Report Type: Other
  Country: US (occurrence: None)
  Receive Date: 20240423
  Receipt Date: 20240423
  Transmission Date: 20240716
  Serious: Yes (Other)
  Sender: FDA-Public Use
  Company Number: US-ROCHE-3521629

PATIENT
  Age: 79 Year
  Sex: Male

DRUGS (11)
  1. VABYSMO [Suspect]
     Active Substance: FARICIMAB\FARICIMAB-SVOA
     Indication: Neovascular age-related macular degeneration
     Dosage: DATE OF TREATMENT: 21/FEB/2024
     Route: 065
  2. VABYSMO [Suspect]
     Active Substance: FARICIMAB\FARICIMAB-SVOA
     Indication: Choroidal neovascularisation
  3. VABYSMO [Suspect]
     Active Substance: FARICIMAB\FARICIMAB-SVOA
     Indication: Glaucoma
  4. VABYSMO [Suspect]
     Active Substance: FARICIMAB\FARICIMAB-SVOA
     Indication: Vitreous degeneration
  5. VABYSMO [Suspect]
     Active Substance: FARICIMAB\FARICIMAB-SVOA
     Indication: Chorioretinal scar
  6. AVASTIN [Suspect]
     Active Substance: BEVACIZUMAB
     Indication: Neovascular age-related macular degeneration
     Dosage: ROUTE: DVT
     Route: 065
     Dates: start: 20170523
  7. LUCENTIS [Suspect]
     Active Substance: RANIBIZUMAB
     Indication: Neovascular age-related macular degeneration
     Dosage: ROUTE: DVT
     Route: 065
     Dates: start: 20171003
  8. VANCOMYCIN [Concomitant]
     Active Substance: VANCOMYCIN
  9. CEFTAZIDIME [Concomitant]
     Active Substance: CEFTAZIDIME
  10. TOBRAMYCIN [Concomitant]
     Active Substance: TOBRAMYCIN\TOBRAMYCIN SULFATE
  11. EYLEA [Concomitant]
     Active Substance: AFLIBERCEPT

REACTIONS (13)
  - Blindness [Not Recovered/Not Resolved]
  - Intraocular pressure increased [Recovered/Resolved]
  - Retinitis [Recovered/Resolved]
  - Endophthalmitis [Unknown]
  - Vomiting [Recovered/Resolved]
  - Headache [Recovered/Resolved]
  - Head discomfort [Recovered/Resolved]
  - Corneal infection [Not Recovered/Not Resolved]
  - Off label use [Unknown]
  - Choroidal detachment [Unknown]
  - Vitritis [Unknown]
  - Anterior chamber cell [Unknown]
  - Vitreous fibrin [Unknown]

NARRATIVE: CASE EVENT DATE: 20240101
